FAERS Safety Report 4422788-6 (Version None)
Quarter: 2004Q3

REPORT INFORMATION
  Report Type: 
  Country: None (occurrence: None)
  Receive Date: 20040719
  Receipt Date: 20031211
  Transmission Date: 20050211
  Serious: Yes (Life-Threatening, Hospitalization, Other)
  Sender: FDA-Public Use
  Company Number: M03-INT-126

PATIENT
  Age: 67 Year
  Sex: Male

DRUGS (10)
  1. INTEGRILIN [Suspect]
     Indication: CORONARY REVASCULARISATION
     Dosage: 180 MCG/KG, IV BOLUS
     Route: 040
     Dates: start: 20031208, end: 20031208
  2. CELEBREX [Concomitant]
  3. GLUCOSAMINE [Concomitant]
  4. ALDACTONE [Concomitant]
  5. ZESTRIL [Concomitant]
  6. LOPRESSOR [Concomitant]
  7. ASPIRIN [Concomitant]
  8. ALPHAGAN [Concomitant]
  9. XALANTAN [Concomitant]
  10. CONTRAST MEDIA [Concomitant]

REACTIONS (4)
  - ABNORMAL SENSATION IN EYE [None]
  - FLUSHING [None]
  - HYPOTENSION [None]
  - RESPIRATORY ARREST [None]
